FAERS Safety Report 9364828 (Version 1)
Quarter: 2013Q2

REPORT INFORMATION
  Report Type: Spontaneous
  Country: US (occurrence: US)
  Receive Date: 20130624
  Receipt Date: 20130624
  Transmission Date: 20140414
  Serious: Yes (Hospitalization)
  Sender: FDA-Public Use
  Company Number: US-GLAXOSMITHKLINE-A0787834A

PATIENT
  Age: 49 Year
  Sex: Female
  Weight: 62.3 kg

DRUGS (1)
  1. AVANDIA [Suspect]
     Indication: DIABETES MELLITUS
     Dosage: 8MG PER DAY
     Route: 048
     Dates: start: 2000, end: 20040605

REACTIONS (3)
  - Cerebrovascular accident [Unknown]
  - Monoplegia [Unknown]
  - Monoplegia [Unknown]
